FAERS Safety Report 8107015-0 (Version None)
Quarter: 2012Q1

REPORT INFORMATION
  Report Type: 
  Country: None (occurrence: None)
  Receive Date: 20120202
  Receipt Date: 20120202
  Transmission Date: 20120608
  Serious: Yes (Hospitalization)
  Sender: FDA-Public Use
  Company Number: None

PATIENT
  Age: 59 Year
  Sex: Male
  Weight: 102 kg

DRUGS (2)
  1. CLARITHROMYCIN [Suspect]
     Indication: PNEUMONIA
     Dosage: 500MG
     Route: 048
     Dates: start: 20120110, end: 20120119
  2. PROGRAF [Concomitant]
     Indication: LIVER TRANSPLANT
     Dosage: 3MG
     Route: 048
     Dates: start: 20110704, end: 20120119

REACTIONS (3)
  - POTENTIATING DRUG INTERACTION [None]
  - HEADACHE [None]
  - DRUG LEVEL INCREASED [None]
